FAERS Safety Report 14069469 (Version 1)
Quarter: 2017Q4

REPORT INFORMATION
  Report Type: Spontaneous
  Country: JP (occurrence: JP)
  Receive Date: 20171010
  Receipt Date: 20171010
  Transmission Date: 20180321
  Serious: Yes (Other)
  Sender: FDA-Public Use
  Company Number: JP-GLAXOSMITHKLINE-JP2017GSK155063

PATIENT
  Age: 55 Year
  Sex: Female

DRUGS (1)
  1. VOLTAREN [Suspect]
     Active Substance: DICLOFENAC SODIUM
     Indication: BACK PAIN
     Route: 048

REACTIONS (2)
  - Eye haemorrhage [Unknown]
  - Eye pain [Unknown]
